FAERS Safety Report 5889725-9 (Version None)
Quarter: 2008Q3

REPORT INFORMATION
  Report Type: 
  Country: None (occurrence: None)
  Receive Date: 20080919
  Receipt Date: 20080911
  Transmission Date: 20090109
  Serious: Yes (Death)
  Sender: FDA-Public Use
  Company Number: IT-BAYER-200826415GPV

PATIENT
  Age: 56 Year
  Sex: Female

DRUGS (11)
  1. FLUDARABINE PHOSPHATE [Suspect]
     Indication: B-CELL LYMPHOMA
     Route: 065
  2. NOVANTRONE [Suspect]
     Indication: B-CELL LYMPHOMA
     Route: 065
     Dates: start: 20040401
  3. DEXAMETHASONE [Suspect]
     Indication: B-CELL LYMPHOMA
     Route: 065
     Dates: start: 20040401
  4. RITUXIMAB [Suspect]
     Indication: B-CELL LYMPHOMA
     Route: 065
     Dates: start: 20050901
  5. RITUXIMAB [Suspect]
     Route: 065
     Dates: start: 20040401
  6. RITUXIMAB [Suspect]
     Route: 065
  7. CYCLOPHOSPHAMIDE [Concomitant]
     Indication: B-CELL LYMPHOMA
     Route: 065
     Dates: start: 20050901
  8. CYCLOPHOSPHAMIDE [Concomitant]
     Route: 065
     Dates: start: 20060101
  9. ADRIAMYCIN PFS [Concomitant]
     Indication: B-CELL LYMPHOMA
     Route: 065
     Dates: start: 20050901
  10. VINCRISTINE [Concomitant]
     Indication: B-CELL LYMPHOMA
     Route: 065
     Dates: start: 20050901
  11. PREDNISONE TAB [Concomitant]
     Indication: B-CELL LYMPHOMA
     Route: 065
     Dates: start: 20050901

REACTIONS (1)
  - ACUTE MYELOID LEUKAEMIA [None]
